FAERS Safety Report 26204684 (Version 1)
Quarter: 2025Q4

REPORT INFORMATION
  Report Type: Spontaneous
  Country: EU (occurrence: EU)
  Receive Date: 20251227
  Receipt Date: 20251227
  Transmission Date: 20260118
  Serious: Yes (Hospitalization)
  Sender: ALEXION PHARMACEUTICALS
  Company Number: None

PATIENT
  Age: 90 Year
  Sex: Female
  Weight: 65 kg

DRUGS (10)
  1. DAPAGLIFLOZIN [Suspect]
     Active Substance: DAPAGLIFLOZIN
     Dosage: 10 MILLIGRAM, QD
     Route: 061
     Dates: start: 20251119
  2. IVERMECTIN [Suspect]
     Active Substance: IVERMECTIN
     Indication: Scabies
     Route: 061
     Dates: start: 20251114, end: 20251205
  3. BENZYL BENZOATE [Suspect]
     Active Substance: BENZYL BENZOATE
     Indication: Scabies
     Dates: start: 20251114, end: 20251208
  4. FOLIC ACID [Suspect]
     Active Substance: FOLIC ACID
     Indication: Anaemia
     Dosage: 5MG 2/J
     Route: 061
     Dates: start: 20251119
  5. FUROSEMIDE [Concomitant]
     Active Substance: FUROSEMIDE
  6. BISOPROLOL [Concomitant]
     Active Substance: BISOPROLOL
  7. ALPRAZOLAM [Concomitant]
     Active Substance: ALPRAZOLAM
  8. EZETIMIBE\SIMVASTATIN [Concomitant]
     Active Substance: EZETIMIBE\SIMVASTATIN
  9. LEVOTHYROXINE [Concomitant]
     Active Substance: LEVOTHYROXINE
  10. BETAHISTINE [Concomitant]
     Active Substance: BETAHISTINE

REACTIONS (1)
  - Confusional state [Not Recovered/Not Resolved]

NARRATIVE: CASE EVENT DATE: 20251202
